FAERS Safety Report 24110352 (Version 1)
Quarter: 2024Q3

REPORT INFORMATION
  Report Type: Report from Study
  Country: US (occurrence: None)
  Receive Date: 20240718
  Receipt Date: 20240718
  Transmission Date: 20241017
  Serious: Yes (Other)
  Sender: ASTRAZENECA
  Company Number: 2020SF45454

PATIENT
  Age: 62 Year
  Sex: Female

DRUGS (1)
  1. TAGRISSO [Suspect]
     Active Substance: OSIMERTINIB
     Indication: Lung neoplasm malignant
     Route: 048

REACTIONS (9)
  - Blood potassium decreased [Unknown]
  - Palpitations [Unknown]
  - Onychoclasis [Unknown]
  - Diarrhoea [Unknown]
  - Onychalgia [Unknown]
  - Sensitive skin [Unknown]
  - Constipation [Unknown]
  - Muscle spasms [Unknown]
  - Cough [Unknown]
